FAERS Safety Report 12689672 (Version 2)
Quarter: 2016Q4

REPORT INFORMATION
  Report Type: Spontaneous
  Country: IE (occurrence: IE)
  Receive Date: 20160826
  Receipt Date: 20161011
  Transmission Date: 20170207
  Serious: Yes (Other)
  Sender: FDA-Public Use
  Company Number: IE-PFIZER INC-2016403441

PATIENT
  Age: 28 Year
  Sex: Male

DRUGS (2)
  1. SUTENT [Suspect]
     Active Substance: SUNITINIB MALATE
     Indication: ALVEOLAR SOFT PART SARCOMA
     Dosage: 37.5 MG, CONTINUOUS DOSING
     Dates: start: 20111003
  2. SUTENT [Suspect]
     Active Substance: SUNITINIB MALATE
     Dosage: 25 MG, CONTINUOUS DOSING

REACTIONS (5)
  - Tumour pain [Unknown]
  - Palmar-plantar erythrodysaesthesia syndrome [Unknown]
  - Proctalgia [Recovered/Resolved]
  - Dyspepsia [Unknown]
  - Product use issue [Unknown]
